FAERS Safety Report 6221955-9 (Version None)
Quarter: 2009Q2

REPORT INFORMATION
  Report Type: 
  Country: None (occurrence: None)
  Receive Date: 20090611
  Receipt Date: 20071130
  Transmission Date: 20091009
  Serious: Yes (Other)
  Sender: FDA-Public Use
  Company Number: US-ASTRAZENECA-2006UW23041

PATIENT
  Age: 638 Month
  Sex: Female
  Weight: 52.6 kg

DRUGS (22)
  1. SEROQUEL [Suspect]
     Indication: BIPOLAR DISORDER
     Route: 048
     Dates: start: 20040401
  2. SEROQUEL [Suspect]
     Indication: DEPRESSION
     Route: 048
     Dates: start: 20040401
  3. SEROQUEL [Suspect]
     Dosage: 25 MG TO 100 MG
     Route: 048
     Dates: start: 20040622
  4. SEROQUEL [Suspect]
     Dosage: 25 MG TO 100 MG
     Route: 048
     Dates: start: 20040622
  5. EFFEXOR [Concomitant]
     Route: 048
     Dates: start: 20060103
  6. ZETIA [Concomitant]
     Route: 048
     Dates: start: 20050415
  7. CRESTOR [Concomitant]
     Route: 048
     Dates: start: 20050415
  8. VIOXX [Concomitant]
     Route: 048
     Dates: start: 20050415
  9. VICODIN [Concomitant]
     Route: 048
     Dates: start: 20050415
  10. PLAVIX [Concomitant]
     Route: 048
     Dates: start: 20050415
  11. ENALAPRIL MALEATE [Concomitant]
     Route: 048
     Dates: start: 20050415
  12. FEMARA [Concomitant]
     Route: 048
     Dates: start: 20050415
  13. TOPROL-XL [Concomitant]
     Route: 048
     Dates: start: 20050415
  14. ASPIRIN [Concomitant]
     Route: 048
     Dates: start: 20050415
  15. IMITREX [Concomitant]
     Route: 048
     Dates: start: 20051026
  16. NYSTATIN [Concomitant]
     Route: 048
     Dates: start: 20051201
  17. FLEXERIL [Concomitant]
     Route: 048
     Dates: start: 20070504
  18. NOVOLOG [Concomitant]
     Dosage: 100 UNITS/ML, DAILY
     Dates: start: 20071206
  19. ASACOL [Concomitant]
     Route: 048
     Dates: start: 20050608
  20. DEPAKOTE [Concomitant]
     Route: 048
     Dates: start: 20050608
  21. NEURONTIN [Concomitant]
     Route: 048
     Dates: start: 20050608
  22. NITROGLYCERIN [Concomitant]
     Route: 048
     Dates: start: 20050608

REACTIONS (5)
  - DIABETES MELLITUS [None]
  - DIABETES MELLITUS INADEQUATE CONTROL [None]
  - HYPERGLYCAEMIA [None]
  - NEUROPATHY PERIPHERAL [None]
  - TYPE 1 DIABETES MELLITUS [None]
